FAERS Safety Report 10220468 (Version 2)
Quarter: 2014Q3

REPORT INFORMATION
  Report Type: Report from Study
  Country: DE (occurrence: DE)
  Receive Date: 20140606
  Receipt Date: 20140801
  Transmission Date: 20150326
  Serious: Yes (Hospitalization)
  Sender: FDA-Public Use
  Company Number: DE-AMGEN INC.-DEUCT2014041939

PATIENT
  Age: 38 Year
  Sex: Female

DRUGS (5)
  1. PREDNISOLON                        /00016201/ [Concomitant]
     Active Substance: PREDNISOLONE
     Dosage: DIFFERING DOSES
     Dates: start: 2006
  2. SERTRALINE [Concomitant]
     Active Substance: SERTRALINE HYDROCHLORIDE
     Dosage: 50 MG, DAILY
     Dates: start: 201101
  3. PREDNISOLON                        /00016201/ [Concomitant]
     Active Substance: PREDNISOLONE
     Dosage: 2.5 MG, DAILY
  4. OMEPRAZOL                          /00661201/ [Concomitant]
     Active Substance: OMEPRAZOLE
     Dosage: 20 MG, AS NEEDED
     Dates: start: 2010
  5. ETANERCEPT [Suspect]
     Active Substance: ETANERCEPT
     Indication: PRODUCT USED FOR UNKNOWN INDICATION
     Dosage: 50 MG, QWK
     Route: 065

REACTIONS (2)
  - Anal abscess [Recovered/Resolved]
  - Crohn^s disease [Recovered/Resolved]

NARRATIVE: CASE EVENT DATE: 20140221
